FAERS Safety Report 7934815-X (Version None)
Quarter: 2011Q4

REPORT INFORMATION
  Report Type: 
  Country: None (occurrence: None)
  Receive Date: 20111122
  Receipt Date: 20111110
  Transmission Date: 20120403
  Serious: Yes (Other)
  Sender: FDA-Public Use
  Company Number: JP-JHP PHARMACEUTICALS, LLC-JHP201100446

PATIENT
  Sex: Male

DRUGS (3)
  1. DANTRIUM [Suspect]
     Dosage: UNK
     Route: 048
     Dates: end: 20110812
  2. METHYCOBAL [Concomitant]
     Indication: SPINAL OSTEOARTHRITIS
     Dosage: UNK
     Dates: start: 20080527
  3. DANTRIUM [Suspect]
     Indication: GAIT SPASTIC
     Dosage: 25 MG, BID
     Route: 048
     Dates: start: 20100827, end: 20110801

REACTIONS (2)
  - EYE MOVEMENT DISORDER [None]
  - DIPLOPIA [None]
